FAERS Safety Report 15891773 (Version 3)
Quarter: 2019Q1

REPORT INFORMATION
  Report Type: Spontaneous
  Country: JP (occurrence: JP)
  Receive Date: 20190130
  Receipt Date: 20190221
  Transmission Date: 20190417
  Serious: Yes (Hospitalization, Other)
  Sender: FDA-Public Use
  Company Number: JP-009507513-1901JPN002513J

PATIENT
  Age: 30 Year
  Sex: Female
  Weight: 49 kg

DRUGS (2)
  1. THERAPY UNSPECIFIED [Suspect]
     Active Substance: UNSPECIFIED INGREDIENT
     Dosage: UNK
     Route: 048
     Dates: start: 2010
  2. FAVOIR 28 [Suspect]
     Active Substance: DESOGESTREL\ETHINYL ESTRADIOL

REACTIONS (4)
  - Product use in unapproved indication [Unknown]
  - Vertebral artery dissection [Unknown]
  - Embolism [Unknown]
  - Transient ischaemic attack [Unknown]

NARRATIVE: CASE EVENT DATE: 2010
